FAERS Safety Report 7544425-4 (Version None)
Quarter: 2011Q2

REPORT INFORMATION
  Report Type: 
  Country: None (occurrence: None)
  Receive Date: 20110613
  Receipt Date: 20081217
  Transmission Date: 20111010
  Serious: Yes (Death, Hospitalization, Other)
  Sender: FDA-Public Use
  Company Number: PHHY2008JP25019

PATIENT
  Sex: Female

DRUGS (13)
  1. RIZE [Concomitant]
     Dosage: 5 MG, UNK
     Route: 048
     Dates: start: 20070619, end: 20071012
  2. ZOLEDRONIC ACID [Suspect]
     Indication: MULTIPLE MYELOMA
     Dosage: 4 MG, EVERY THREE WEEKS
     Route: 042
     Dates: start: 20070110, end: 20070130
  3. ZOLEDRONIC ACID [Suspect]
     Dosage: 4 MG, EVERY THREE WEEKS
     Route: 042
     Dates: start: 20070306, end: 20070329
  4. ZOLEDRONIC ACID [Suspect]
     Dosage: 4 MG
     Route: 042
     Dates: start: 20071002, end: 20071002
  5. ADONA [Concomitant]
     Dosage: 30 MG, UNK
     Route: 048
     Dates: start: 20070110, end: 20071029
  6. CYTOTEC [Concomitant]
     Dosage: 200 UG, UNK
     Route: 048
     Dates: start: 20060411, end: 20070125
  7. ZOLEDRONIC ACID [Suspect]
     Dosage: 4 MG
     Route: 042
     Dates: start: 20070724, end: 20070724
  8. RABEPRAZOLE SODIUM [Concomitant]
     Dosage: 20 MG, UNK
     Route: 048
     Dates: start: 20070108, end: 20071110
  9. ZOLEDRONIC ACID [Suspect]
     Dosage: 4 MG, EVERY THREE WEEKS
     Route: 042
     Dates: start: 20070419, end: 20070510
  10. ZOLEDRONIC ACID [Suspect]
     Dosage: 4 MG
     Route: 042
     Dates: start: 20070619, end: 20070619
  11. BENET [Concomitant]
     Dosage: 2.5 MG/DAY
     Route: 048
     Dates: start: 20060630, end: 20070115
  12. ZOLEDRONIC ACID [Suspect]
     Dosage: UNK
     Dates: start: 20071204, end: 20071204
  13. ALLEGRA [Concomitant]
     Dosage: 120 MG, UNK
     Route: 048
     Dates: start: 20070622, end: 20071110

REACTIONS (11)
  - BACTERIAL INFECTION [None]
  - CELLULITIS [None]
  - BLOOD UREA INCREASED [None]
  - HYPERTENSION [None]
  - STAPHYLOCOCCAL INFECTION [None]
  - BLOOD CREATININE INCREASED [None]
  - BLOOD CALCIUM DECREASED [None]
  - URINARY TRACT INFECTION [None]
  - DEATH [None]
  - PNEUMONIA [None]
  - NEOPLASM MALIGNANT [None]
